FAERS Safety Report 15485365 (Version 1)
Quarter: 2018Q4

REPORT INFORMATION
  Report Type: Spontaneous
  Country: US (occurrence: US)
  Receive Date: 20181010
  Receipt Date: 20181010
  Transmission Date: 20190205
  Serious: No
  Sender: FDA-Public Use
  Company Number: US-ROCHE-2169637

PATIENT
  Sex: Female
  Weight: 49.49 kg

DRUGS (3)
  1. ALECENSA [Suspect]
     Active Substance: ALECTINIB HYDROCHLORIDE
     Indication: NEOPLASM MALIGNANT
     Dosage: 4 TABLETS BY MOUTH, ONGOING
     Route: 048
     Dates: start: 20180717
  2. ALECENSA [Suspect]
     Active Substance: ALECTINIB HYDROCHLORIDE
     Dosage: STATUS: UNK
     Route: 048
     Dates: start: 20180802
  3. LOSARTAN. [Concomitant]
     Active Substance: LOSARTAN
     Dosage: STATUS: UNK
     Route: 048
     Dates: start: 20180716

REACTIONS (1)
  - Photosensitivity reaction [Unknown]
